FAERS Safety Report 5421319-1 (Version None)
Quarter: 2007Q3

REPORT INFORMATION
  Report Type: 
  Country: None (occurrence: None)
  Receive Date: 20070817
  Receipt Date: 20070806
  Transmission Date: 20080115
  Serious: Yes (Hospitalization)
  Sender: FDA-Public Use
  Company Number: 236488K07USA

PATIENT
  Age: 44 Year
  Sex: Female

DRUGS (4)
  1. REBIF [Suspect]
     Indication: MULTIPLE SCLEROSIS
     Dosage: 44 MCG, 3 IN 1 WEEKS, SUBCUTANEOUS
     Route: 058
     Dates: start: 20070207
  2. LYRICA [Concomitant]
  3. BACLOFEN [Concomitant]
  4. VICODIN [Concomitant]

REACTIONS (2)
  - UNRESPONSIVE TO STIMULI [None]
  - URINARY TRACT INFECTION [None]
